FAERS Safety Report 5287934-3 (Version None)
Quarter: 2007Q2

REPORT INFORMATION
  Report Type: 
  Country: None (occurrence: None)
  Receive Date: 20070405
  Receipt Date: 20070322
  Transmission Date: 20071010
  Serious: Yes (Hospitalization)
  Sender: FDA-Public Use
  Company Number: HQWYE668223FEB07

PATIENT
  Sex: Female
  Weight: 50 kg

DRUGS (6)
  1. ENBREL [Suspect]
     Indication: RHEUMATOID ARTHRITIS
     Route: 058
     Dates: start: 20060822, end: 20070126
  2. ISCOTIN [Concomitant]
     Route: 048
     Dates: start: 20060607
  3. ALTAT [Concomitant]
     Route: 048
     Dates: start: 20060509
  4. VITAMEDIN [Concomitant]
     Route: 048
     Dates: start: 20060607
  5. RHEUMATREX [Concomitant]
     Indication: RHEUMATOID ARTHRITIS
     Dosage: UNKNOWN
     Route: 048
     Dates: start: 20060509
  6. PREDONINE [Concomitant]
     Route: 048
     Dates: start: 20060509

REACTIONS (1)
  - ARTERITIS [None]
